FAERS Safety Report 4526268-9 (Version None)
Quarter: 2004Q4

REPORT INFORMATION
  Report Type: 
  Country: None (occurrence: None)
  Receive Date: 20041210
  Receipt Date: 20041125
  Transmission Date: 20050328
  Serious: Yes (Life-Threatening, Hospitalization)
  Sender: FDA-Public Use
  Company Number: PHNR2004AU01663

PATIENT
  Age: 86 Year
  Sex: Female
  Weight: 58.0151 kg

DRUGS (4)
  1. VISUDYNE [Suspect]
     Dates: start: 20041111, end: 20041111
  2. MELLARIL [Suspect]
     Dates: start: 19840101, end: 20040101
  3. CIPRAMIL [Suspect]
     Dosage: 20 MG DAILY
     Dates: start: 20040101
  4. TRIAMCINOLONE ACETONIDE [Suspect]
     Dosage: 6 MG DAILY EYE
     Dates: start: 20041112, end: 20041112

REACTIONS (7)
  - CHEMICAL BURN OF SKIN [None]
  - CHEMICAL POISONING [None]
  - DELIRIUM [None]
  - DRUG WITHDRAWAL SYNDROME [None]
  - OESOPHAGITIS CHEMICAL [None]
  - PNEUMONIA ASPIRATION [None]
  - SUICIDE ATTEMPT [None]
